FAERS Safety Report 20379743 (Version 1)
Quarter: 2022Q1

REPORT INFORMATION
  Report Type: Spontaneous
  Country: US (occurrence: None)
  Receive Date: 20220126
  Receipt Date: 20220126
  Transmission Date: 20220424
  Serious: Yes (Hospitalization)
  Sender: FDA-Public Use
  Company Number: None

PATIENT
  Sex: Female

DRUGS (4)
  1. OCTREOTIDE [Suspect]
     Active Substance: OCTREOTIDE
     Indication: Rheumatoid arthritis
     Dosage: OTHER FREQUENCY : EVERY 8 HRS;?
     Route: 058
     Dates: start: 202201
  2. OCTREOTIDE [Suspect]
     Active Substance: OCTREOTIDE
     Indication: Crohn^s disease
  3. OCTREOTIDE [Suspect]
     Active Substance: OCTREOTIDE
     Indication: Diarrhoea
  4. OCTREOTIDE [Suspect]
     Active Substance: OCTREOTIDE
     Indication: Crohn^s disease

REACTIONS (1)
  - Hospitalisation [None]
